FAERS Safety Report 9013513 (Version 1)
Quarter: 2013Q1

REPORT INFORMATION
  Report Type: Spontaneous
  Country: GB (occurrence: GB)
  Receive Date: 20130115
  Receipt Date: 20130115
  Transmission Date: 20140127
  Serious: Yes (Death, Other)
  Sender: FDA-Public Use
  Company Number: PHFR2012GB006093

PATIENT
  Sex: Male

DRUGS (1)
  1. NEORAL [Suspect]
     Indication: RENAL TRANSPLANT

REACTIONS (3)
  - Death [Fatal]
  - Intestinal obstruction [Unknown]
  - Oral administration complication [Unknown]
